FAERS Safety Report 7418004-3 (Version None)
Quarter: 2011Q2

REPORT INFORMATION
  Report Type: 
  Country: None (occurrence: None)
  Receive Date: 20110415
  Receipt Date: 20100831
  Transmission Date: 20111010
  Serious: No
  Sender: FDA-Public Use
  Company Number: US-ASTRAZENECA-2010SE41322

PATIENT
  Sex: Male

DRUGS (1)
  1. ZESTORETIC [Suspect]
     Route: 048

REACTIONS (4)
  - CHILLS [None]
  - LOSS OF CONSCIOUSNESS [None]
  - VOMITING [None]
  - PYREXIA [None]
